FAERS Safety Report 4878215-8 (Version None)
Quarter: 2006Q1

REPORT INFORMATION
  Report Type: 
  Country: None (occurrence: None)
  Receive Date: 20060111
  Receipt Date: 20050517
  Transmission Date: 20060701
  Serious: Yes (Hospitalization)
  Sender: FDA-Public Use
  Company Number: US-MERCK-0505USA02103

PATIENT
  Age: 69 Year
  Sex: Female
  Weight: 86 kg

DRUGS (1)
  1. VIOXX [Suspect]
     Indication: ARTHRITIS
     Route: 048
     Dates: start: 20000101, end: 20030101

REACTIONS (4)
  - ARTHROPATHY [None]
  - HIP SURGERY [None]
  - KNEE OPERATION [None]
  - MYOCARDIAL INFARCTION [None]
